FAERS Safety Report 24683966 (Version 2)
Quarter: 2025Q1

REPORT INFORMATION
  Report Type: Spontaneous
  Country: US (occurrence: US)
  Receive Date: 20241202
  Receipt Date: 20250327
  Transmission Date: 20250409
  Serious: Yes (Other)
  Sender: JOHNSON AND JOHNSON
  Company Number: US-JNJFOC-20241136685

PATIENT
  Age: 56 Year
  Sex: Male
  Weight: 89.811 kg

DRUGS (4)
  1. CARVYKTI [Suspect]
     Active Substance: CILTACABTAGENE AUTOLEUCEL
     Indication: Plasma cell myeloma
     Route: 042
     Dates: start: 20241009, end: 20241009
  2. LOSARTAN [Concomitant]
     Active Substance: LOSARTAN
     Indication: Hypertension
     Dates: start: 20250207
  3. VITAMINS [Concomitant]
     Active Substance: VITAMINS
     Dates: start: 20241009
  4. DAPSONE [Concomitant]
     Active Substance: DAPSONE
     Indication: Antifungal prophylaxis
     Dates: start: 20250226

REACTIONS (4)
  - Neuralgic amyotrophy [Not Recovered/Not Resolved]
  - Loss of personal independence in daily activities [Unknown]
  - Bell^s palsy [Not Recovered/Not Resolved]
  - Asthenia [Unknown]

NARRATIVE: CASE EVENT DATE: 20241019
